FAERS Safety Report 15561183 (Version 3)
Quarter: 2018Q4

REPORT INFORMATION
  Report Type: Spontaneous
  Country: US (occurrence: US)
  Receive Date: 20181029
  Receipt Date: 20181217
  Transmission Date: 20190205
  Serious: Yes (Death)
  Sender: FDA-Public Use
  Company Number: US-PFIZER INC-2018439991

PATIENT
  Age: 79 Year
  Sex: Female

DRUGS (8)
  1. CEFTAZIDIME. [Suspect]
     Active Substance: CEFTAZIDIME
     Indication: ENDOCARDITIS
     Dosage: 1 G, 2X/DAY, (EVERY 12 HOURS)
     Route: 042
  2. GENTAMICIN SULFATE. [Suspect]
     Active Substance: GENTAMICIN SULFATE
     Indication: ESCHERICHIA INFECTION
  3. CEFOXITIN SODIUM [Suspect]
     Active Substance: CEFOXITIN SODIUM
     Indication: ESCHERICHIA INFECTION
  4. CEFTIZOXIME [Suspect]
     Active Substance: CEFTIZOXIME
     Indication: ESCHERICHIA INFECTION
  5. CEFOXITIN SODIUM [Suspect]
     Active Substance: CEFOXITIN SODIUM
     Indication: ENDOCARDITIS
     Dosage: 1 G, 2X/DAY, (EVERY 12 HOURS)
     Route: 042
  6. CEFTAZIDIME. [Suspect]
     Active Substance: CEFTAZIDIME
     Indication: ESCHERICHIA INFECTION
  7. GENTAMICIN SULFATE. [Suspect]
     Active Substance: GENTAMICIN SULFATE
     Indication: ENDOCARDITIS
     Dosage: UNK
  8. CEFTIZOXIME [Suspect]
     Active Substance: CEFTIZOXIME
     Indication: ENDOCARDITIS
     Dosage: UNK

REACTIONS (1)
  - No adverse event [Fatal]
